FAERS Safety Report 13503832 (Version 2)
Quarter: 2017Q3

REPORT INFORMATION
  Report Type: Spontaneous
  Country: US (occurrence: US)
  Receive Date: 20170502
  Receipt Date: 20170705
  Transmission Date: 20171127
  Serious: Yes (Death, Other)
  Sender: FDA-Public Use
  Company Number: US-IMPAX LABORATORIES, INC-2017-IPXL-00890

PATIENT
  Age: 83 Year
  Sex: Male

DRUGS (2)
  1. ARICEPT [Interacting]
     Active Substance: DONEPEZIL HYDROCHLORIDE
     Indication: PRODUCT USED FOR UNKNOWN INDICATION
     Dosage: UNK
     Route: 065
  2. RYTARY [Suspect]
     Active Substance: CARBIDOPA\LEVODOPA
     Indication: PARKINSON^S DISEASE
     Dosage: 23.75/95MG, 1 CAPSULE, 2 TIMES DAILY
     Route: 048

REACTIONS (8)
  - Neck injury [Unknown]
  - Fall [Unknown]
  - Drug interaction [Unknown]
  - Unevaluable event [Fatal]
  - Lethargy [Unknown]
  - Confusional state [Unknown]
  - Wrong technique in product usage process [Unknown]
  - Drug ineffective [Unknown]

NARRATIVE: CASE EVENT DATE: 20170404
